FAERS Safety Report 13516320 (Version 5)
Quarter: 2017Q3

REPORT INFORMATION
  Report Type: Spontaneous
  Country: US (occurrence: US)
  Receive Date: 20170505
  Receipt Date: 20170929
  Transmission Date: 20171127
  Serious: No
  Sender: FDA-Public Use
  Company Number: PHEH2017US013382

PATIENT
  Sex: Female
  Weight: 68.27 kg

DRUGS (1)
  1. ZOFRAN [Suspect]
     Active Substance: ONDANSETRON HYDROCHLORIDE
     Indication: HYPEREMESIS GRAVIDARUM
     Dosage: 08 MG, Q8H
     Route: 048
     Dates: start: 20131105, end: 20131126

REACTIONS (11)
  - Injury [Unknown]
  - Urinary tract infection [Unknown]
  - Constipation [Unknown]
  - Dehydration [Unknown]
  - Anxiety [Unknown]
  - Maternal exposure during pregnancy [Unknown]
  - Product use in unapproved indication [Unknown]
  - Emotional distress [Unknown]
  - Skin ulcer [Unknown]
  - Pain [Unknown]
  - Decreased appetite [Unknown]
